FAERS Safety Report 16162114 (Version 1)
Quarter: 2019Q2

REPORT INFORMATION
  Report Type: Spontaneous
  Country: GB (occurrence: GB)
  Receive Date: 20190405
  Receipt Date: 20190405
  Transmission Date: 20190711
  Serious: Yes (Other)
  Sender: FDA-Public Use
  Company Number: GB-ROCHE-2237754

PATIENT
  Age: 49 Year
  Sex: Female

DRUGS (1)
  1. CLONAZEPAM. [Suspect]
     Active Substance: CLONAZEPAM
     Indication: TIC
     Route: 065

REACTIONS (5)
  - Sedation [Unknown]
  - Vision blurred [Unknown]
  - Ill-defined disorder [Unknown]
  - Seizure [Unknown]
  - Memory impairment [Unknown]
